FAERS Safety Report 20062617 (Version 2)
Quarter: 2021Q4

REPORT INFORMATION
  Report Type: Spontaneous
  Country: US (occurrence: US)
  Receive Date: 20211112
  Receipt Date: 20211124
  Transmission Date: 20220303
  Serious: No
  Sender: FDA-Public Use
  Company Number: US-BEH-2021137917

PATIENT
  Sex: Female

DRUGS (3)
  1. HIZENTRA [Suspect]
     Active Substance: HUMAN IMMUNOGLOBULIN G
     Indication: Humoral immune defect
     Dosage: 4 GRAM, QOW
     Route: 058
     Dates: start: 202101
  2. HIZENTRA [Suspect]
     Active Substance: HUMAN IMMUNOGLOBULIN G
     Indication: Juvenile idiopathic arthritis
     Dosage: 2 GRAM, QOW
     Route: 058
     Dates: start: 202101
  3. HIZENTRA [Suspect]
     Active Substance: HUMAN IMMUNOGLOBULIN G
     Dosage: 6 GRAM, QOW
     Route: 058
     Dates: start: 201911

REACTIONS (5)
  - Infusion site swelling [Unknown]
  - Infusion site discolouration [Unknown]
  - No adverse event [Unknown]
  - Off label use [Unknown]
  - Product use complaint [Unknown]
